FAERS Safety Report 23545686 (Version 1)
Quarter: 2024Q1

REPORT INFORMATION
  Report Type: Spontaneous
  Country: US (occurrence: US)
  Receive Date: 20240220
  Receipt Date: 20240220
  Transmission Date: 20240410
  Serious: No
  Sender: FDA-Public Use
  Company Number: US-PFIZER INC-202400041640

PATIENT
  Age: 68 Year
  Sex: Male

DRUGS (3)
  1. LORAZEPAM [Suspect]
     Active Substance: LORAZEPAM
     Indication: Sleep disorder
     Dosage: HALF A TABLET AT NIGHT
  2. LORAZEPAM [Suspect]
     Active Substance: LORAZEPAM
     Dosage: HAVE BEEN TAKING A MILLIGRAM
  3. ROSUVASTATIN [Concomitant]
     Active Substance: ROSUVASTATIN
     Indication: Blood cholesterol increased
     Dosage: UNK

REACTIONS (2)
  - Memory impairment [Unknown]
  - Drug ineffective [Unknown]
